FAERS Safety Report 6269265-8 (Version None)
Quarter: 2009Q3

REPORT INFORMATION
  Report Type: 
  Country: None (occurrence: None)
  Receive Date: 20090713
  Receipt Date: 20090702
  Transmission Date: 20100115
  Serious: Yes (Other)
  Sender: FDA-Public Use
  Company Number: GXKR2009GB07583

PATIENT
  Age: 96 Year
  Sex: Female

DRUGS (4)
  1. DOXYCYCLINE [Suspect]
     Indication: COUGH
     Dates: start: 20090408, end: 20090408
  2. ALPHADERM (HYDROCORTISONE, UREA) [Concomitant]
  3. WHITE SOFT PARAFIN (PETROLATUM, WHITE SOFT PARAFIN) [Concomitant]
  4. MELOXICAM [Concomitant]

REACTIONS (4)
  - DIARRHOEA [None]
  - DIZZINESS [None]
  - NAUSEA [None]
  - PYREXIA [None]
